FAERS Safety Report 4990851-7 (Version None)
Quarter: 2006Q2

REPORT INFORMATION
  Report Type: 
  Country: None (occurrence: None)
  Receive Date: 20060428
  Receipt Date: 20060421
  Transmission Date: 20061013
  Serious: No
  Sender: FDA-Public Use
  Company Number: 2006-141622-NL

PATIENT
  Age: 33 Year
  Sex: Female

DRUGS (3)
  1. MIRTAZAPINE [Suspect]
     Route: 048
     Dates: start: 20060318, end: 20060327
  2. CITALOPRAM HYDROBROMIDE [Suspect]
     Route: 048
     Dates: start: 20050101
  3. CLONAZEPAM [Suspect]
     Dosage: 2 MG QD
     Route: 048
     Dates: start: 20050101, end: 20060317

REACTIONS (2)
  - DRUG EXPOSURE DURING PREGNANCY [None]
  - UNINTENDED PREGNANCY [None]
